FAERS Safety Report 5307023-9 (Version None)
Quarter: 2007Q2

REPORT INFORMATION
  Report Type: 
  Country: None (occurrence: None)
  Receive Date: 20070420
  Receipt Date: 20070420
  Transmission Date: 20071010
  Serious: Yes (Other)
  Sender: FDA-Public Use
  Company Number: None

PATIENT
  Sex: Female
  Weight: 78.9259 kg

DRUGS (8)
  1. HYDROXYCHLOROQUINE SULFATE [Suspect]
     Dosage: 200MG 2 PO QD
     Route: 048
     Dates: start: 19980101, end: 20060101
  2. MOBIC [Concomitant]
  3. ULTRAM [Concomitant]
  4. ZOLOFT [Concomitant]
  5. NEXIUM [Concomitant]
  6. SYNTHROID [Concomitant]
  7. BENICAR [Concomitant]
  8. RX VITAMIN D [Concomitant]

REACTIONS (2)
  - RETINAL DEGENERATION [None]
  - RETINOGRAM ABNORMAL [None]
